FAERS Safety Report 8486329-9 (Version None)
Quarter: 2012Q3

REPORT INFORMATION
  Report Type: 
  Country: None (occurrence: None)
  Receive Date: 20120703
  Receipt Date: 20120702
  Transmission Date: 20120928
  Serious: Yes (Death, Hospitalization)
  Sender: FDA-Public Use
  Company Number: US-GLAXOSMITHKLINE-A0973396A

PATIENT
  Age: 44 Year
  Sex: Male

DRUGS (21)
  1. HYDROMORPHONE HCL [Concomitant]
  2. DOXAZOSIN MESYLATE [Concomitant]
  3. VENOFER [Concomitant]
  4. LABETALOL HCL [Concomitant]
  5. LOSARTAN POTASSIUM [Concomitant]
  6. VITAPLEX [Concomitant]
  7. NORVASC [Concomitant]
  8. BENADRYL [Concomitant]
  9. SACCHAROMYCES BOULARDII [Concomitant]
  10. EPIVIR-HBV [Suspect]
     Indication: PRODUCT USED FOR UNKNOWN INDICATION
     Dosage: 100MG PER DAY
     Route: 048
     Dates: start: 20120201
  11. FENTANYL-100 [Concomitant]
  12. HYDRALAZINE HYDROCHLORIDE [Concomitant]
  13. MOXIFLOXACIN [Concomitant]
  14. DARBEPOETIN ALFA [Concomitant]
  15. ZEMPLAR [Concomitant]
  16. TENOFOVIR DISOPROXIL FUMARATE [Concomitant]
  17. SENSIPAR [Concomitant]
  18. CLONIDINE [Concomitant]
  19. PERCOCET [Concomitant]
  20. MEPRON [Suspect]
     Indication: PRODUCT USED FOR UNKNOWN INDICATION
     Dosage: 750MG TWICE PER DAY
     Route: 048
     Dates: start: 20120301
  21. RALTEGRAVIR [Concomitant]

REACTIONS (1)
  - CARDIAC FAILURE [None]
